FAERS Safety Report 15340209 (Version 1)
Quarter: 2018Q3

REPORT INFORMATION
  Report Type: Spontaneous
  Country: CN (occurrence: CN)
  Receive Date: 20180831
  Receipt Date: 20180831
  Transmission Date: 20181010
  Serious: Yes (Death, Life-Threatening, Other)
  Sender: FDA-Public Use
  Company Number: CN-BAYER-2018-159512

PATIENT
  Age: 54 Year
  Sex: Male

DRUGS (3)
  1. MOXIFLOXACIN ORAL [Suspect]
     Active Substance: MOXIFLOXACIN
     Dosage: UNK
  2. MICAFUNGIN [Concomitant]
     Active Substance: MICAFUNGIN
  3. METHYLPREDNISOLONE. [Concomitant]
     Active Substance: METHYLPREDNISOLONE
     Dosage: 80 MG, BID

REACTIONS (3)
  - Respiratory failure [None]
  - Respiratory failure [Fatal]
  - Drug ineffective [None]
